FAERS Safety Report 17500494 (Version 3)
Quarter: 2020Q2

REPORT INFORMATION
  Report Type: Spontaneous
  Country: DE (occurrence: DE)
  Receive Date: 20200305
  Receipt Date: 20200624
  Transmission Date: 20200713
  Serious: Yes (Hospitalization, Other)
  Sender: FDA-Public Use
  Company Number: NVSC2020DE060465

PATIENT
  Age: 89 Year
  Sex: Female
  Weight: 75 kg

DRUGS (6)
  1. DIGIMERCK [Concomitant]
     Active Substance: DIGITOXIN
     Indication: PRODUCT USED FOR UNKNOWN INDICATION
     Dosage: 0.05 MG (1 IN THE MORNING)
     Route: 048
  2. DEKRISTOL [Concomitant]
     Active Substance: CHOLECALCIFEROL
     Indication: PRODUCT USED FOR UNKNOWN INDICATION
     Dosage: 2000 UNK IE (EVERY FIRST AND 15TH DAY OF EACH MONTH)
     Route: 048
  3. EXFORGE HCT [Suspect]
     Active Substance: AMLODIPINE BESYLATE\HYDROCHLOROTHIAZIDE\VALSARTAN
     Indication: HYPERTENSION
     Dosage: UNK 10/320/25
     Route: 048
  4. XARELTO [Concomitant]
     Active Substance: RIVAROXABAN
     Indication: PRODUCT USED FOR UNKNOWN INDICATION
     Dosage: 15 MG (1 IN THE MORNING)
     Route: 048
  5. AMLODIPIN DEXCEL [Concomitant]
     Active Substance: AMLODIPINE MALEATE
     Indication: PRODUCT USED FOR UNKNOWN INDICATION
     Dosage: 5 MG (1 IN THE MORNING, 1 IN THE EVENING)
     Route: 065
  6. CANDESARTAN CILEXETIL MYLAN [Concomitant]
     Active Substance: CANDESARTAN CILEXETIL
     Indication: PRODUCT USED FOR UNKNOWN INDICATION
     Dosage: 16 MG (1 IN THE MORNING)
     Route: 048

REACTIONS (3)
  - Pemphigoid [Recovering/Resolving]
  - Cardiac failure [Unknown]
  - Atrial fibrillation [Unknown]

NARRATIVE: CASE EVENT DATE: 20191116
